FAERS Safety Report 7799558-4 (Version None)
Quarter: 2011Q4

REPORT INFORMATION
  Report Type: 
  Country: None (occurrence: None)
  Receive Date: 20111006
  Receipt Date: 20111006
  Transmission Date: 20120403
  Serious: No
  Sender: FDA-Public Use
  Company Number: None

PATIENT
  Sex: Female
  Weight: 49.895 kg

DRUGS (1)
  1. CYMBALTA [Suspect]
     Indication: DEPRESSION
     Dates: start: 20060101, end: 20110101

REACTIONS (7)
  - ANXIETY [None]
  - FEAR [None]
  - PANIC ATTACK [None]
  - HYPERSENSITIVITY [None]
  - JOINT INSTABILITY [None]
  - MULTIPLE INJURIES [None]
  - INTERVERTEBRAL DISC PROTRUSION [None]
